FAERS Safety Report 20599343 (Version 2)
Quarter: 2022Q1

REPORT INFORMATION
  Report Type: Spontaneous
  Country: US (occurrence: None)
  Receive Date: 20220315
  Receipt Date: 20220323
  Transmission Date: 20220423
  Serious: No
  Sender: FDA-Public Use
  Company Number: US-ROCHE-2950755

PATIENT
  Sex: Female

DRUGS (16)
  1. XOLAIR [Suspect]
     Active Substance: OMALIZUMAB
     Indication: Asthma
     Dosage: STRENGTH:150 MG/ML
     Route: 065
     Dates: start: 20210727
  2. ALPRAZOLAM [Concomitant]
     Active Substance: ALPRAZOLAM
  3. CHLORHEXIDINE GLUCONATE [Concomitant]
     Active Substance: CHLORHEXIDINE GLUCONATE
  4. NASONEX [Concomitant]
     Active Substance: MOMETASONE FUROATE
  5. AMOXICILLIN [Concomitant]
     Active Substance: AMOXICILLIN
  6. IBUPROFEN [Concomitant]
     Active Substance: IBUPROFEN
  7. EPIPEN [Concomitant]
     Active Substance: EPINEPHRINE
  8. OMEPRAZOLE [Concomitant]
     Active Substance: OMEPRAZOLE
  9. ATORVASTATIN CALCIUM [Concomitant]
     Active Substance: ATORVASTATIN CALCIUM
  10. DETROL LA [Concomitant]
     Active Substance: TOLTERODINE TARTRATE
  11. OXYCODONE [Concomitant]
     Active Substance: OXYCODONE
  12. ACETAMINOPHEN [Concomitant]
     Active Substance: ACETAMINOPHEN
  13. CEPHALEXIN [Concomitant]
     Active Substance: CEPHALEXIN
  14. DIAZEPAM [Concomitant]
     Active Substance: DIAZEPAM
  15. ONDANSETRON [Concomitant]
     Active Substance: ONDANSETRON
  16. MONTELUKAST SODIUM [Concomitant]
     Active Substance: MONTELUKAST SODIUM

REACTIONS (1)
  - Sinusitis [Unknown]
